FAERS Safety Report 8230825-6 (Version None)
Quarter: 2012Q1

REPORT INFORMATION
  Report Type: 
  Country: None (occurrence: None)
  Receive Date: 20120323
  Receipt Date: 20120314
  Transmission Date: 20120608
  Serious: Yes (Death, Life-Threatening, Hospitalization, Other)
  Sender: FDA-Public Use
  Company Number: MX-SANOFI-AVENTIS-2012SA017688

PATIENT
  Age: 77 Year
  Sex: Female
  Weight: 78 kg

DRUGS (4)
  1. ANTIHYPERTENSIVES [Concomitant]
     Route: 048
     Dates: end: 20120116
  2. NIFEDIPINE [Concomitant]
     Route: 048
     Dates: end: 20120116
  3. LANTUS [Suspect]
     Indication: TYPE 2 DIABETES MELLITUS
     Route: 058
     Dates: start: 20020101, end: 20100101
  4. LANTUS [Suspect]
     Route: 058
     Dates: start: 20100101, end: 20120116

REACTIONS (4)
  - RENAL FAILURE CHRONIC [None]
  - DISEASE COMPLICATION [None]
  - CARDIO-RESPIRATORY ARREST [None]
  - CEREBROVASCULAR ACCIDENT [None]
